FAERS Safety Report 9373495 (Version 1)
Quarter: 2013Q2

REPORT INFORMATION
  Report Type: Spontaneous
  Country: GB (occurrence: GB)
  Receive Date: 20130627
  Receipt Date: 20130627
  Transmission Date: 20140414
  Serious: Yes (Other)
  Sender: FDA-Public Use
  Company Number: PHHY2013GB064653

PATIENT
  Sex: 0

DRUGS (3)
  1. DIAMORPHINE HYDROCHLORIDE [Suspect]
     Dosage: UNK UKN, UNK
     Route: 064
  2. NICOTINE [Suspect]
     Dosage: UNK UKN, UNK
     Route: 064
  3. SUBUTEX [Suspect]
     Indication: DEPENDENCE
     Dosage: (MATERNAL DOSE: 10 MG ONCE A DAY
     Route: 064
     Dates: start: 20060504, end: 20060808

REACTIONS (2)
  - Foetal exposure during pregnancy [Recovered/Resolved]
  - Drug withdrawal syndrome neonatal [Unknown]
